FAERS Safety Report 22253278 (Version 2)
Quarter: 2023Q2

REPORT INFORMATION
  Report Type: Report from Study
  Country: US (occurrence: US)
  Receive Date: 20230426
  Receipt Date: 20230502
  Transmission Date: 20230721
  Serious: Yes (Other)
  Sender: FDA-Public Use
  Company Number: US-002147023-NVSC2023US092810

PATIENT
  Age: 51 Year
  Sex: Male

DRUGS (1)
  1. KESIMPTA [Suspect]
     Active Substance: OFATUMUMAB
     Indication: Product used for unknown indication
     Dosage: 20 MG
     Route: 030

REACTIONS (6)
  - Erectile dysfunction [Unknown]
  - Azoospermia [Unknown]
  - Amnesia [Unknown]
  - Dysarthria [Unknown]
  - Rash [Unknown]
  - Product use issue [Unknown]

NARRATIVE: CASE EVENT DATE: 20230425
